FAERS Safety Report 21244139 (Version 18)
Quarter: 2025Q2

REPORT INFORMATION
  Report Type: Spontaneous
  Country: US (occurrence: US)
  Receive Date: 20220823
  Receipt Date: 20250626
  Transmission Date: 20250717
  Serious: No
  Sender: DAIICHI
  Company Number: US-DSJP-DSU-2022-128665AA

PATIENT
  Sex: Female

DRUGS (4)
  1. TURALIO [Suspect]
     Active Substance: PEXIDARTINIB HYDROCHLORIDE
     Indication: Histiocytosis
     Dosage: 250 MG, BID
     Route: 048
     Dates: start: 20220719
  2. TURALIO [Suspect]
     Active Substance: PEXIDARTINIB HYDROCHLORIDE
     Indication: Connective tissue neoplasm
     Dosage: 400 MG, BID
     Route: 048
     Dates: end: 202208
  3. TURALIO [Suspect]
     Active Substance: PEXIDARTINIB HYDROCHLORIDE
     Indication: Soft tissue neoplasm
     Dosage: UNK UNK, BID
     Route: 048
     Dates: start: 20230711
  4. TURALIO [Suspect]
     Active Substance: PEXIDARTINIB HYDROCHLORIDE
     Dosage: 250 MG, BID (125 MG 2 CAPSULES BY MOUTH TWICE DAILY)
     Route: 048
     Dates: start: 20240222

REACTIONS (17)
  - Diarrhoea [Unknown]
  - White blood cell count abnormal [Unknown]
  - White blood cell count decreased [Recovered/Resolved]
  - Nasopharyngitis [Not Recovered/Not Resolved]
  - Diarrhoea [Not Recovered/Not Resolved]
  - Memory impairment [Not Recovered/Not Resolved]
  - Memory impairment [Not Recovered/Not Resolved]
  - Photosensitivity reaction [Not Recovered/Not Resolved]
  - Hair colour changes [Not Recovered/Not Resolved]
  - Hair colour changes [Unknown]
  - Nasopharyngitis [Not Recovered/Not Resolved]
  - Therapy interrupted [Unknown]
  - Off label use [Unknown]
  - Product dose omission issue [Recovered/Resolved]
  - Product dose omission issue [Recovered/Resolved]
  - Product dose omission in error [Not Recovered/Not Resolved]
  - Product dose omission issue [Unknown]

NARRATIVE: CASE EVENT DATE: 20220101
